FAERS Safety Report 14156337 (Version 2)
Quarter: 2018Q1

REPORT INFORMATION
  Report Type: Spontaneous
  Country: US (occurrence: US)
  Receive Date: 20171103
  Receipt Date: 20180110
  Transmission Date: 20180508
  Serious: No
  Sender: FDA-Public Use
  Company Number: US-PFIZER INC-2017473257

PATIENT
  Age: 53 Year
  Sex: Male
  Weight: 109 kg

DRUGS (8)
  1. HYDROCHLOROTH [Concomitant]
     Active Substance: HYDROCHLOROTHIAZIDE
     Indication: DIURETIC THERAPY
     Dosage: 12.5 MG, 1X/DAY
     Route: 048
     Dates: start: 201709
  2. LYRICA [Concomitant]
     Active Substance: PREGABALIN
  3. NOVOLOG [Concomitant]
     Active Substance: INSULIN ASPART
     Indication: DIABETES MELLITUS
     Dosage: 30 UNITS AS DIRECTED
     Route: 058
     Dates: start: 2017
  4. LISINOPRIL. [Concomitant]
     Active Substance: LISINOPRIL
     Indication: HYPERTENSION
     Dosage: 20 MG, 1X/DAY
     Route: 048
     Dates: start: 2017
  5. GABAPENTIN. [Suspect]
     Active Substance: GABAPENTIN
     Indication: DIABETIC NEUROPATHY
     Dosage: 300 MG, 3X/DAY
     Route: 048
     Dates: start: 20170919, end: 20171026
  6. METFORMIN [Concomitant]
     Active Substance: METFORMIN HYDROCHLORIDE
     Indication: DIABETES MELLITUS
     Dosage: 500 MG, 2X/DAY
     Route: 048
     Dates: start: 2017
  7. PREGABALIN. [Concomitant]
     Active Substance: PREGABALIN
     Indication: DIABETIC NEUROPATHY
     Dosage: 50 MG, 3X/DAY
     Dates: start: 20171026
  8. LOVASTATIN. [Concomitant]
     Active Substance: LOVASTATIN
     Indication: ARTERITIS
     Dosage: UNK
     Dates: start: 201708

REACTIONS (9)
  - Dehydration [Unknown]
  - Feeling abnormal [Unknown]
  - Drug ineffective for unapproved indication [Recovering/Resolving]
  - Balance disorder [Recovered/Resolved]
  - Somnolence [Recovered/Resolved]
  - Pain [Unknown]
  - Asthenia [Unknown]
  - Dizziness [Unknown]
  - Memory impairment [Unknown]

NARRATIVE: CASE EVENT DATE: 201709
